FAERS Safety Report 7854945-0 (Version None)
Quarter: 2011Q4

REPORT INFORMATION
  Report Type: 
  Country: None (occurrence: None)
  Receive Date: 20111026
  Receipt Date: 20100211
  Transmission Date: 20120403
  Serious: No
  Sender: FDA-Public Use
  Company Number: US-BAYER-201013848NA

PATIENT
  Sex: Male

DRUGS (1)
  1. LEVITRA [Suspect]
     Indication: PRODUCT USED FOR UNKNOWN INDICATION
     Dosage: PHYSICIAN PRESCRIBED 2MG LEVITRA - DOSAGE DOES NOT EXIST
     Dates: start: 20091201

REACTIONS (1)
  - DRUG INEFFECTIVE [None]
